FAERS Safety Report 18503637 (Version 1)
Quarter: 2020Q4

REPORT INFORMATION
  Report Type: Spontaneous
  Country: CN (occurrence: CN)
  Receive Date: 20201113
  Receipt Date: 20201113
  Transmission Date: 20210114
  Serious: Yes (Hospitalization)
  Sender: FDA-Public Use
  Company Number: CN-ASTRAZENECA-2020SF44518

PATIENT
  Age: 52 Year
  Sex: Female
  Weight: 61.2 kg

DRUGS (1)
  1. IRESSA [Suspect]
     Active Substance: GEFITINIB
     Indication: NON-SMALL CELL LUNG CANCER
     Route: 048

REACTIONS (8)
  - Dyspnoea [Recovered/Resolved]
  - Productive cough [Recovered/Resolved]
  - Tracheal obstruction [Recovered/Resolved]
  - Drug ineffective [Unknown]
  - Haemoptysis [Recovered/Resolved]
  - Acne [Recovered/Resolved]
  - Drug resistance [Unknown]
  - Epistaxis [Recovered/Resolved]
